FAERS Safety Report 15931094 (Version 4)
Quarter: 2019Q1

REPORT INFORMATION
  Report Type: Spontaneous
  Country: US (occurrence: US)
  Receive Date: 20190207
  Receipt Date: 20190306
  Transmission Date: 20190417
  Serious: Yes (Hospitalization, Other)
  Sender: FDA-Public Use
  Company Number: US-AMGEN-USASP2019016733

PATIENT
  Age: 86 Year
  Sex: Female
  Weight: 55.5 kg

DRUGS (10)
  1. VITAMIN D [Concomitant]
     Active Substance: CHOLECALCIFEROL
  2. PROBIOTIC [Concomitant]
     Active Substance: PROBIOTICS NOS
  3. PROLIA [Suspect]
     Active Substance: DENOSUMAB
     Indication: BONE DISORDER
     Dosage: UNK, Q6MO
     Route: 058
     Dates: start: 20181130, end: 20190131
  4. CRANBERRY JUICE [Concomitant]
     Active Substance: CRANBERRY JUICE
  5. PRAVASTATIN. [Concomitant]
     Active Substance: PRAVASTATIN
     Dosage: 10 MG, UNK
  6. CORTISONE [Concomitant]
     Active Substance: CORTISONE\HYDROCORTISONE
     Indication: BACK PAIN
  7. MULTIVITAMIN [Concomitant]
     Active Substance: VITAMINS
  8. PROLIA [Suspect]
     Active Substance: DENOSUMAB
     Indication: OSTEOPOROSIS
  9. PREDNISONE. [Concomitant]
     Active Substance: PREDNISONE
     Dosage: 2 MG, QD
  10. ELIQUIS [Concomitant]
     Active Substance: APIXABAN
     Dosage: 2.5 MG, BID

REACTIONS (6)
  - Rib fracture [Not Recovered/Not Resolved]
  - Bone pain [Not Recovered/Not Resolved]
  - Hypotension [Not Recovered/Not Resolved]
  - Fall [Unknown]
  - Asthenia [Not Recovered/Not Resolved]
  - Ill-defined disorder [Not Recovered/Not Resolved]

NARRATIVE: CASE EVENT DATE: 20181218
